FAERS Safety Report 19989516 (Version 2)
Quarter: 2022Q1

REPORT INFORMATION
  Report Type: Report from Study
  Country: US (occurrence: US)
  Receive Date: 20211025
  Receipt Date: 20220121
  Transmission Date: 20220423
  Serious: No
  Sender: FDA-Public Use
  Company Number: US-BIOVITRUM-2021US2065

PATIENT
  Age: 65 Year
  Sex: Female

DRUGS (3)
  1. KINERET [Suspect]
     Active Substance: ANAKINRA
     Indication: Product used for unknown indication
     Route: 058
     Dates: start: 20191015
  2. KINERET [Suspect]
     Active Substance: ANAKINRA
     Dates: start: 20190702
  3. KINERET [Suspect]
     Active Substance: ANAKINRA
     Route: 058

REACTIONS (5)
  - Loss of personal independence in daily activities [Unknown]
  - Muscle strain [Unknown]
  - Intentional product misuse [Unknown]
  - Product dose omission issue [Unknown]
  - Off label use [Not Recovered/Not Resolved]

NARRATIVE: CASE EVENT DATE: 20220110
